FAERS Safety Report 14692459 (Version 3)
Quarter: 2018Q2

REPORT INFORMATION
  Report Type: Spontaneous
  Country: AU (occurrence: AU)
  Receive Date: 20180329
  Receipt Date: 20180627
  Transmission Date: 20180711
  Serious: Yes (Other)
  Sender: FDA-Public Use
  Company Number: AU-NAPPMUNDI-GBR-2018-0054498

PATIENT
  Sex: Male

DRUGS (14)
  1. EFEXOR [Concomitant]
     Active Substance: VENLAFAXINE HYDROCHLORIDE
  2. LASIX [Concomitant]
     Active Substance: FUROSEMIDE
  3. ELIGARD [Suspect]
     Active Substance: LEUPROLIDE ACETATE
     Indication: PROSTATE CANCER
     Dosage: 22.5MG EVERY 3 MONTHS
     Route: 058
     Dates: start: 20161212
  4. DIABEX [Concomitant]
     Active Substance: METFORMIN HYDROCHLORIDE
  5. ATORVASTATIN [Concomitant]
     Active Substance: ATORVASTATIN
  6. LYRICA [Concomitant]
     Active Substance: PREGABALIN
  7. PARACETAMOL [Concomitant]
     Active Substance: ACETAMINOPHEN
  8. QUINATE                            /00032104/ [Concomitant]
  9. RESTAVIT [Concomitant]
  10. TWYNSTA [Concomitant]
     Active Substance: AMLODIPINE BESYLATE\TELMISARTAN
  11. OXYCONTIN [Concomitant]
     Active Substance: OXYCODONE HYDROCHLORIDE
     Indication: PRODUCT USED FOR UNKNOWN INDICATION
     Dosage: UNK
     Route: 065
  12. ALPHAPRESS                         /00007602/ [Concomitant]
  13. VITAMIN D [Concomitant]
     Active Substance: CHOLECALCIFEROL
  14. PROGOUT [Concomitant]
     Active Substance: ALLOPURINOL

REACTIONS (3)
  - Blood glucose increased [Unknown]
  - Hypoglycaemia [Unknown]
  - Skin neoplasm excision [Unknown]
